FAERS Safety Report 13237160 (Version 1)
Quarter: 2017Q1

REPORT INFORMATION
  Report Type: Spontaneous
  Country: US (occurrence: US)
  Receive Date: 20170215
  Receipt Date: 20170215
  Transmission Date: 20170428
  Serious: Yes (Disabling)
  Sender: FDA-Public Use
  Company Number: US-ALK ABELLO INC-1063155

PATIENT
  Sex: Female

DRUGS (1)
  1. VARIOUS UNSPECIFIED ALK ALLERGEN EXTRACTS [Suspect]
     Active Substance: ALLERGENIC EXTRACTS

REACTIONS (5)
  - Rosacea [None]
  - Spinal deformity [None]
  - Bone deformity [None]
  - Hand deformity [None]
  - Foot deformity [None]
